FAERS Safety Report 8992733 (Version 1)
Quarter: 2013Q1

REPORT INFORMATION
  Report Type: Spontaneous
  Country: IL (occurrence: IL)
  Receive Date: 20130102
  Receipt Date: 20130102
  Transmission Date: 20140127
  Serious: Yes (Hospitalization, Other)
  Sender: FDA-Public Use
  Company Number: IL-ROCHE-1174941

PATIENT
  Age: 38 Year
  Sex: Male
  Weight: 96.7 kg

DRUGS (8)
  1. PEGASYS [Suspect]
     Indication: CHRONIC HEPATITIS C
     Route: 058
     Dates: start: 20070425, end: 20080501
  2. COPEGUS [Suspect]
     Indication: CHRONIC HEPATITIS C
     Route: 048
  3. PARACETAMOL [Concomitant]
     Indication: PYREXIA
  4. OPTALGIN [Concomitant]
     Indication: HEADACHE
  5. SYNTHOMYCIN [Concomitant]
  6. TAROCIDIN [Concomitant]
  7. COSOPT [Concomitant]
     Route: 047
  8. LOSEC (ISRAEL) [Concomitant]
     Route: 065

REACTIONS (17)
  - Optic neuropathy [Not Recovered/Not Resolved]
  - Papillitis [Unknown]
  - Fat necrosis [Unknown]
  - Gait disturbance [Unknown]
  - Blindness unilateral [Not Recovered/Not Resolved]
  - Dizziness [Not Recovered/Not Resolved]
  - Depression [Not Recovered/Not Resolved]
  - Visual acuity reduced [Not Recovered/Not Resolved]
  - Eye oedema [Unknown]
  - Fatigue [Unknown]
  - Pyrexia [Recovered/Resolved]
  - Asthenia [Unknown]
  - Headache [Unknown]
  - Injection site pain [Unknown]
  - Dry mouth [Unknown]
  - Dry throat [Unknown]
  - Optic atrophy [Unknown]
